FAERS Safety Report 10067578 (Version 2)
Quarter: 2014Q2

REPORT INFORMATION
  Report Type: Spontaneous
  Country: CN (occurrence: CN)
  Receive Date: 20140409
  Receipt Date: 20140428
  Transmission Date: 20141212
  Serious: Yes (Life-Threatening)
  Sender: FDA-Public Use
  Company Number: CN-JNJFOC-20140400220

PATIENT
  Age: 45 Year
  Sex: Male

DRUGS (13)
  1. INVEGA SUSTENNA [Suspect]
     Indication: SCHIZOPHRENIA
     Route: 030
     Dates: start: 20120725
  2. INVEGA SUSTENNA [Suspect]
     Indication: SCHIZOPHRENIA
     Route: 030
     Dates: start: 201304
  3. INVEGA SUSTENNA [Suspect]
     Indication: SCHIZOPHRENIA
     Route: 030
     Dates: start: 201307, end: 2014
  4. INVEGA SUSTENNA [Suspect]
     Indication: SCHIZOPHRENIA
     Route: 030
  5. INVEGA SUSTENNA [Suspect]
     Indication: SCHIZOPHRENIA
     Route: 030
  6. INVEGA SUSTENNA [Suspect]
     Indication: SCHIZOPHRENIA
     Route: 030
  7. RISPERDAL [Concomitant]
     Route: 048
  8. RISPERDAL [Concomitant]
     Route: 048
  9. RISPERDAL [Concomitant]
     Route: 048
  10. RISPERDAL [Concomitant]
     Route: 048
  11. CLONAZEPAM [Concomitant]
     Route: 065
  12. QUETIAPINE [Concomitant]
     Route: 065
  13. INVEGA [Concomitant]
     Route: 048

REACTIONS (1)
  - Cardiac arrest [Recovered/Resolved]
